FAERS Safety Report 7329836-4 (Version None)
Quarter: 2011Q1

REPORT INFORMATION
  Report Type: 
  Country: None (occurrence: None)
  Receive Date: 20110303
  Receipt Date: 20110218
  Transmission Date: 20110831
  Serious: Yes (Other)
  Sender: FDA-Public Use
  Company Number: US-ELI_LILLY_AND_COMPANY-US201102005579

PATIENT
  Sex: Female

DRUGS (8)
  1. OXYCONTIN [Concomitant]
  2. LYRICA [Concomitant]
     Indication: NERVE INJURY
     Dosage: 300 MG, 2/D
     Route: 048
     Dates: start: 20080601
  3. CYMBALTA [Suspect]
     Indication: NERVE INJURY
  4. TRAZODONE [Concomitant]
  5. CLONIDINE [Concomitant]
  6. VALACICLOVIR [Concomitant]
  7. FLEXERIL [Concomitant]
  8. NEUROTIN                           /00949202/ [Concomitant]
     Indication: NERVE INJURY
     Dosage: 600 MG, OTHER
     Route: 048
     Dates: start: 20080601

REACTIONS (2)
  - OFF LABEL USE [None]
  - THYROID DISORDER [None]
